FAERS Safety Report 9870402 (Version 2)
Quarter: 2014Q1

REPORT INFORMATION
  Report Type: Spontaneous
  Country: US (occurrence: None)
  Receive Date: 20140203
  Receipt Date: 20140211
  Transmission Date: 20141002
  Serious: Yes (Hospitalization)
  Sender: FDA-Public Use
  Company Number: AUR-APL-2014-00582

PATIENT
  Age: 69 Year
  Sex: Female

DRUGS (16)
  1. FLUOXETINE (FLUOXETINE) [Suspect]
     Indication: PRODUCT USED FOR UNKNOWN INDICATION
     Dosage: 1 D
  2. RANEXA [Suspect]
     Indication: ANGINA PECTORIS
     Dosage: 1 D
  3. CIMETIDINE (CIMETIDINE) (CIMETIDINE) [Suspect]
     Indication: PRODUCT USED FOR UNKNOWN INDICATION
     Dosage: 1 D
  4. BUMETANIDE [Concomitant]
  5. ATORVASTATIN (ATORVASTATIN) [Concomitant]
  6. KCL (POTASSIUM CHLORIDE) [Concomitant]
  7. LOSARTAN(LOSARTAN) [Concomitant]
  8. AMLODIPINE(AMLODIPINE) [Concomitant]
  9. ALPRAZOLAM(ALPRAZOLAM) (ALPRAZOLAM) [Concomitant]
  10. ATENOLOL(ATENOLOL) [Concomitant]
  11. ISOSORBIDE(ISOSORBIDE) [Concomitant]
  12. CLOPIDOGREL(CLOPIDOGREL) [Concomitant]
  13. MELOXICAM(MELOXICAM) [Concomitant]
  14. PANTOPRAZOLE(PANTOPRAZOLE) [Concomitant]
  15. NTG(GLYCERYL TRINITRATE) [Concomitant]
  16. ASPIRIN(ACETYLSALICYLIC ACID) [Concomitant]

REACTIONS (9)
  - Torsade de pointes [None]
  - Potentiating drug interaction [None]
  - Malaise [None]
  - Cardiac arrest [None]
  - Ventricular tachycardia [None]
  - Hypomagnesaemia [None]
  - Hypokalaemia [None]
  - Urinary tract infection [None]
  - Myocardial ischaemia [None]
